FAERS Safety Report 5884409-5 (Version None)
Quarter: 2008Q3

REPORT INFORMATION
  Report Type: 
  Country: None (occurrence: None)
  Receive Date: 20080915
  Receipt Date: 20080911
  Transmission Date: 20090109
  Serious: Yes (Hospitalization)
  Sender: FDA-Public Use
  Company Number: IT-MERCK-0809ITA00023

PATIENT
  Age: 67 Year
  Sex: Female

DRUGS (3)
  1. ZOCOR [Suspect]
     Indication: HYPERCHOLESTEROLAEMIA
     Route: 048
     Dates: start: 20080730, end: 20080831
  2. CLOPIDOGREL BISULFATE [Suspect]
     Indication: MYOCARDIAL ISCHAEMIA
     Route: 065
     Dates: start: 20070730, end: 20080831
  3. ENOXAPARIN SODIUM [Suspect]
     Indication: MYOCARDIAL ISCHAEMIA
     Route: 051
     Dates: start: 20080730, end: 20080831

REACTIONS (3)
  - ANAEMIA [None]
  - DIARRHOEA [None]
  - HYPERAMYLASAEMIA [None]
